FAERS Safety Report 6657983-9 (Version None)
Quarter: 2010Q1

REPORT INFORMATION
  Report Type: 
  Country: None (occurrence: None)
  Receive Date: 20100330
  Receipt Date: 20100324
  Transmission Date: 20100710
  Serious: Yes (Hospitalization)
  Sender: FDA-Public Use
  Company Number: B0643839A

PATIENT
  Age: 33 Year
  Sex: Female
  Weight: 54 kg

DRUGS (1)
  1. ALLI [Suspect]
     Route: 065
     Dates: start: 20100307, end: 20100314

REACTIONS (2)
  - ACUTE HEPATIC FAILURE [None]
  - OFF LABEL USE [None]
